FAERS Safety Report 9099769 (Version 1)
Quarter: 2013Q1

REPORT INFORMATION
  Report Type: Spontaneous
  Country: US (occurrence: US)
  Receive Date: 20130214
  Receipt Date: 20130214
  Transmission Date: 20140127
  Serious: Yes (Other)
  Sender: FDA-Public Use
  Company Number: US-BAYER-2013-018050

PATIENT
  Age: 40 Year
  Sex: Female
  Weight: 67.57 kg

DRUGS (12)
  1. YAZ [Suspect]
     Indication: MIGRAINE
  2. YAZ [Suspect]
     Indication: CONTRACEPTION
  3. YAZ [Suspect]
     Indication: DYSMENORRHOEA
  4. SAFYRAL [Suspect]
  5. FROVA [Concomitant]
     Indication: MIGRAINE
     Dosage: 2.5 MG, UNK
     Dates: start: 20101228, end: 20120816
  6. CARISOPRODOL [Concomitant]
     Dosage: UNK
     Dates: start: 20110719
  7. PROCHLORPERAZINE [Concomitant]
     Dosage: UNK
     Dates: start: 20110719
  8. LIDOCAINE W/PRILOCAINE [Concomitant]
     Dosage: UNK
     Dates: start: 20110719
  9. CYCLOBENZAPRINE [Concomitant]
     Dosage: UNK
     Dates: start: 20110719
  10. PREDNISONE [Concomitant]
     Dosage: UNK
     Dates: start: 20110719
  11. METAXALONE [Concomitant]
     Dosage: UNK
     Dates: start: 20110812
  12. BUSPIRONE [Concomitant]
     Dosage: UNK
     Dates: start: 20110812

REACTIONS (1)
  - Deep vein thrombosis [None]
